FAERS Safety Report 4870631-3 (Version None)
Quarter: 2005Q4

REPORT INFORMATION
  Report Type: 
  Country: None (occurrence: None)
  Receive Date: 20051228
  Receipt Date: 20051209
  Transmission Date: 20060501
  Serious: Yes (Other)
  Sender: FDA-Public Use
  Company Number: US200512001790

PATIENT
  Age: 54 Year
  Sex: Female

DRUGS (5)
  1. HUMALOG [Suspect]
     Indication: DIABETES MELLITUS
     Dates: start: 19990101
  2. HUMALOG [Suspect]
     Indication: DIABETES MELLITUS
     Dates: start: 19990101
  3. ILETIN BEEF/PORK REGULAR (INSULIN, ANIMAL [Suspect]
     Indication: DIABETES MELLITUS
  4. INSULIN, ANIMAL B/PNPH (INSULIN, ANIMAL BEEF/PO [Suspect]
     Indication: DIABETES MELLITUS
  5. LANTUS [Concomitant]

REACTIONS (7)
  - BLOOD GLUCOSE INCREASED [None]
  - DIABETIC RETINOPATHY [None]
  - DRUG INEFFECTIVE [None]
  - EYE HAEMORRHAGE [None]
  - MEDICAL DEVICE COMPLICATION [None]
  - PHARMACEUTICAL PRODUCT COMPLAINT [None]
  - VISUAL ACUITY REDUCED [None]
